FAERS Safety Report 9834415 (Version 2)
Quarter: 2014Q1

REPORT INFORMATION
  Report Type: Spontaneous
  Country: HR (occurrence: HR)
  Receive Date: 20140122
  Receipt Date: 20140212
  Transmission Date: 20141002
  Serious: Yes (Death)
  Sender: FDA-Public Use
  Company Number: HR-SA-2014SA006519

PATIENT
  Age: 6 Year
  Sex: Female

DRUGS (10)
  1. MYOZYME [Suspect]
     Indication: GLYCOGEN STORAGE DISEASE TYPE II
     Dosage: 50 MG
     Route: 042
     Dates: start: 20071015, end: 20131122
  2. VITAMIN D [Concomitant]
     Indication: RICKETS
     Dates: end: 20140114
  3. CONTROLOC [Concomitant]
     Dates: end: 20140114
  4. LASIX [Concomitant]
     Indication: CARDIOMYOPATHY
     Dates: end: 20140114
  5. GENTAMICIN [Concomitant]
     Indication: RESPIRATORY TRACT INFECTION
     Dates: start: 20131128, end: 20131213
  6. GENTAMICIN [Concomitant]
     Indication: URINARY TRACT INFECTION
     Dates: start: 20131128, end: 20131213
  7. AMIKACIN [Concomitant]
     Indication: RESPIRATORY TRACT INFECTION
     Dates: start: 20131213, end: 20131225
  8. AMIKACIN [Concomitant]
     Indication: URINARY TRACT INFECTION
     Dates: start: 20131213, end: 20131225
  9. TIENAM [Concomitant]
     Indication: RESPIRATORY TRACT INFECTION
     Dates: start: 20131225, end: 20140104
  10. TIENAM [Concomitant]
     Indication: URINARY TRACT INFECTION
     Dates: start: 20131225, end: 20140104

REACTIONS (1)
  - Cardiac failure [Fatal]
